FAERS Safety Report 20197690 (Version 1)
Quarter: 2021Q4

REPORT INFORMATION
  Report Type: Spontaneous
  Country: FR (occurrence: FR)
  Receive Date: 20211217
  Receipt Date: 20211217
  Transmission Date: 20220303
  Serious: Yes (Hospitalization, Other)
  Sender: FDA-Public Use
  Company Number: FR-ABBVIE-21K-056-4202497-00

PATIENT
  Age: 19 Year
  Sex: Male

DRUGS (1)
  1. HUMIRA [Suspect]
     Active Substance: ADALIMUMAB
     Indication: Spondyloarthropathy
     Route: 058
     Dates: start: 2016

REACTIONS (6)
  - Suicide attempt [Unknown]
  - Drug abuse [Unknown]
  - Suicidal ideation [Unknown]
  - Depression [Unknown]
  - Burnout syndrome [Unknown]
  - Dyskinesia [Unknown]
